FAERS Safety Report 7796810-3 (Version None)
Quarter: 2011Q4

REPORT INFORMATION
  Report Type: 
  Country: None (occurrence: None)
  Receive Date: 20111005
  Receipt Date: 20110926
  Transmission Date: 20120403
  Serious: Yes (Other)
  Sender: FDA-Public Use
  Company Number: US-BAYER-2011-091488

PATIENT
  Sex: Female

DRUGS (1)
  1. MIRENA [Suspect]
     Dosage: UNK

REACTIONS (6)
  - DEVICE DISLOCATION [None]
  - POLLAKIURIA [None]
  - MOOD ALTERED [None]
  - BREAST TENDERNESS [None]
  - MIGRAINE [None]
  - FATIGUE [None]
